FAERS Safety Report 9721148 (Version 2)
Quarter: 2013Q4

REPORT INFORMATION
  Report Type: Spontaneous
  Country: TR (occurrence: TR)
  Receive Date: 20131129
  Receipt Date: 20131129
  Transmission Date: 20140711
  Serious: Yes (Other)
  Sender: FDA-Public Use
  Company Number: TR-009507513-1310TUR012377

PATIENT
  Age: 74 Year
  Sex: Female
  Weight: 76.8 kg

DRUGS (2)
  1. JANUVIA 25MG [Suspect]
     Dosage: TOTAL DAILY DOSE: 100 MG
     Route: 048
     Dates: start: 20121219, end: 20131001
  2. NOVO-NORM [Suspect]
     Dosage: 0.5 MG, THREE TIMES IN A DAY (3X1)
     Route: 048
     Dates: start: 20130221

REACTIONS (8)
  - Breast cancer [Unknown]
  - Pancreatic mass [Unknown]
  - Hepatomegaly [Unknown]
  - Hepatic steatosis [Unknown]
  - Pancreatic steatosis [Unknown]
  - Renal cyst [Unknown]
  - Gallbladder operation [Unknown]
  - Lipoma [Unknown]
